FAERS Safety Report 9862528 (Version 2)
Quarter: 2014Q1

REPORT INFORMATION
  Report Type: Report from Study
  Country: AT (occurrence: AT)
  Receive Date: 20140203
  Receipt Date: 20140203
  Transmission Date: 20141002
  Serious: Yes (Death, Life-Threatening)
  Sender: FDA-Public Use
  Company Number: AT-SA-200920669GDDC

PATIENT
  Age: 50 Year
  Sex: Female

DRUGS (5)
  1. DOCETAXEL [Suspect]
     Indication: BREAST CANCER
     Dosage: DOSE UNIT: 100 MG/M**2
     Route: 042
     Dates: start: 20020913, end: 20021115
  2. DOXORUBICIN [Suspect]
     Indication: BREAST CANCER
     Dosage: DOSE UNIT: 60 MG/M**2
     Dates: start: 20020619, end: 20020823
  3. CYCLOPHOSPHAMIDE [Suspect]
     Indication: BREAST CANCER
     Dosage: DOSE UNIT: 600 MG/M**2
     Dates: start: 20020619, end: 20020823
  4. ZOFRAN [Concomitant]
     Route: 042
     Dates: start: 20021115, end: 20021115
  5. FORTECORTIN [Concomitant]
     Dates: start: 20021116, end: 20021116

REACTIONS (2)
  - Acute myeloid leukaemia [Fatal]
  - Gingival hyperplasia [Fatal]
